FAERS Safety Report 9507633 (Version 2)
Quarter: 2013Q3

REPORT INFORMATION
  Report Type: Spontaneous
  Country: DE (occurrence: DE)
  Receive Date: 20130909
  Receipt Date: 20130923
  Transmission Date: 20140515
  Serious: No
  Sender: FDA-Public Use
  Company Number: DE-009507513-1309DEU002161

PATIENT
  Age: 35 Year
  Sex: Female

DRUGS (2)
  1. IMPLANON [Suspect]
     Dosage: ROD
     Route: 059
  2. INTERFERON ALFA-2B [Concomitant]
     Dosage: 3X3 ML/ WEEK
     Dates: start: 20130701

REACTIONS (1)
  - No adverse event [Unknown]
